FAERS Safety Report 15674369 (Version 2)
Quarter: 2018Q4

REPORT INFORMATION
  Report Type: Spontaneous
  Country: IN (occurrence: IN)
  Receive Date: 20181130
  Receipt Date: 20181204
  Transmission Date: 20190205
  Serious: Yes (Hospitalization, Other)
  Sender: FDA-Public Use
  Company Number: IN-CIPLA LTD.-2018IN23068

PATIENT

DRUGS (6)
  1. NEVIRAPINE. [Suspect]
     Active Substance: NEVIRAPINE
     Indication: HIV INFECTION
     Dosage: 200 MG, QD
     Route: 065
  2. LAMIVUDINE. [Suspect]
     Active Substance: LAMIVUDINE
     Indication: HIV INFECTION
     Dosage: 150 MG, BID
     Route: 065
  3. LAMIVUDINE. [Suspect]
     Active Substance: LAMIVUDINE
     Indication: ACQUIRED IMMUNODEFICIENCY SYNDROME
  4. ZIDOVUDINE. [Suspect]
     Active Substance: ZIDOVUDINE
     Indication: HIV INFECTION
     Dosage: 300 MG, BID
     Route: 065
  5. ZIDOVUDINE. [Suspect]
     Active Substance: ZIDOVUDINE
     Indication: ACQUIRED IMMUNODEFICIENCY SYNDROME
  6. NEVIRAPINE. [Suspect]
     Active Substance: NEVIRAPINE
     Indication: ACQUIRED IMMUNODEFICIENCY SYNDROME

REACTIONS (4)
  - Myopathy [Recovered/Resolved]
  - Treatment noncompliance [Unknown]
  - Lactic acidosis [Recovered/Resolved]
  - Pancreatitis acute [Recovered/Resolved]
